FAERS Safety Report 9322194 (Version 2)
Quarter: 2013Q2

REPORT INFORMATION
  Report Type: Spontaneous
  Country: FI (occurrence: FI)
  Receive Date: 20130531
  Receipt Date: 20130606
  Transmission Date: 20140414
  Serious: Yes (Other)
  Sender: FDA-Public Use
  Company Number: FI-ABBOTT-13P-055-1096482-00

PATIENT
  Age: 27 Year
  Sex: Male

DRUGS (3)
  1. HUMIRA [Suspect]
     Indication: CROHN^S DISEASE
     Route: 058
     Dates: start: 20130524, end: 20130524
  2. PENTASA [Concomitant]
     Indication: PRODUCT USED FOR UNKNOWN INDICATION
     Dosage: 4+2 (3000 MG DAILY)
  3. AZAMUN [Concomitant]
     Indication: PRODUCT USED FOR UNKNOWN INDICATION
     Dosage: 175 MG DAILY

REACTIONS (5)
  - Malaise [Recovered/Resolved]
  - Vision blurred [Recovered/Resolved]
  - Cold sweat [Recovered/Resolved]
  - Hyperventilation [Recovered/Resolved]
  - Blood pressure immeasurable [Recovering/Resolving]
